FAERS Safety Report 26144223 (Version 3)
Quarter: 2025Q4

REPORT INFORMATION
  Report Type: Spontaneous
  Country: EU (occurrence: EU)
  Receive Date: 20251211
  Receipt Date: 20251223
  Transmission Date: 20260118
  Serious: Yes (Other)
  Sender: RANBAXY
  Company Number: EU-SUN PHARMACEUTICAL INDUSTRIES INC-2025R1-540904

PATIENT
  Sex: Female
  Weight: 74 kg

DRUGS (3)
  1. METRONIDAZOLE [Suspect]
     Active Substance: METRONIDAZOLE
     Indication: Cholecystitis
     Dosage: 1.5 GRAM
     Route: 042
     Dates: start: 20250121, end: 20250124
  2. METRONIDAZOLE [Suspect]
     Active Substance: METRONIDAZOLE
     Indication: Infection
  3. MEROPENEM [Suspect]
     Active Substance: MEROPENEM
     Indication: Cholecystitis
     Dosage: UNKNOWN
     Route: 042

REACTIONS (5)
  - Condition aggravated [Unknown]
  - C-reactive protein increased [Recovering/Resolving]
  - Neutrophil count decreased [Recovered/Resolved]
  - Pancytopenia [Recovering/Resolving]
  - Hypotension [Recovering/Resolving]
